FAERS Safety Report 7655207-7 (Version None)
Quarter: 2011Q3

REPORT INFORMATION
  Report Type: 
  Country: None (occurrence: None)
  Receive Date: 20110729
  Receipt Date: 20110719
  Transmission Date: 20111222
  Serious: Yes (Hospitalization)
  Sender: FDA-Public Use
  Company Number: DKLU1071894

PATIENT
  Age: 8 Month
  Sex: Female

DRUGS (4)
  1. DEPAKOTE [Concomitant]
  2. CLONAZEPAM [Concomitant]
  3. TOPIRAMATE [Concomitant]
  4. SABRIL [Suspect]
     Indication: INFANTILE SPASMS
     Dosage: 500 MG MILLIGRAM(S), 2 IN 1 D, ORAL
     Route: 048
     Dates: start: 20110624

REACTIONS (3)
  - SOMNOLENCE [None]
  - HYPOXIC-ISCHAEMIC ENCEPHALOPATHY [None]
  - RHINORRHOEA [None]
